FAERS Safety Report 11341841 (Version 2)
Quarter: 2015Q3

REPORT INFORMATION
  Report Type: Report from Study
  Country: DE (occurrence: DE)
  Receive Date: 20150805
  Receipt Date: 20150828
  Transmission Date: 20151125
  Serious: Yes (Hospitalization)
  Sender: FDA-Public Use
  Company Number: DE-PFIZER INC-2015250850

PATIENT
  Age: 76 Year
  Sex: Male
  Weight: 68 kg

DRUGS (3)
  1. RITUXIMAB [Suspect]
     Active Substance: RITUXIMAB
     Dosage: 708.75 MG, UNK
     Dates: start: 20150309, end: 20150615
  2. BENDAMUSTINE [Suspect]
     Active Substance: BENDAMUSTINE
     Dosage: 170.1 MG, UNK
     Dates: start: 20150309, end: 20150616
  3. TEMSIROLIMUS [Suspect]
     Active Substance: TEMSIROLIMUS
     Dosage: 50 MG, UNK
     Dates: start: 20150310, end: 20150622

REACTIONS (1)
  - Enteritis [Recovered/Resolved]

NARRATIVE: CASE EVENT DATE: 20150703
